FAERS Safety Report 7656233 (Version 2)
Quarter: 2012Q4

REPORT INFORMATION
  Report Type: Spontaneous
  Country: US (occurrence: None)
  Receive Date: 20101013
  Receipt Date: 20121022
  Transmission Date: 20130627
  Serious: Yes (Disabling, Other)
  Sender: FDA-Public Use
  Company Number: 2010MA003360

PATIENT
  Sex: Male
  Weight: 86.18 kg

DRUGS (16)
  1. METOCLOPRAMIDE [Suspect]
     Indication: GASTROOESOPHAGEAL REFLUX DISEASE
     Dosage: PO
     Route: 048
     Dates: start: 20050906, end: 20070203
  2. APIDRA [Concomitant]
  3. FUROSEMIDE [Concomitant]
  4. HUMULIN [Concomitant]
  5. ISORDIL [Concomitant]
  6. LEVEMIR [Concomitant]
  7. LOPERAMIDE [Concomitant]
  8. LOVASTATIN [Concomitant]
  9. METOPROLOL [Concomitant]
  10. NORVASC [Concomitant]
  11. NPH INSULIN [Concomitant]
  12. PENTOXIFYLLINE [Concomitant]
  13. PREVACID [Concomitant]
  14. PROTONIX [Concomitant]
  15. QUINAPRIL [Concomitant]
  16. SINEMET [Concomitant]

REACTIONS (15)
  - Injury [None]
  - Economic problem [None]
  - Deformity [None]
  - Mental disorder [None]
  - Incorrect drug administration duration [None]
  - Activities of daily living impaired [None]
  - Nervous system disorder [None]
  - Extrapyramidal disorder [None]
  - Tardive dyskinesia [None]
  - Tremor [None]
  - Grimacing [None]
  - Pain [None]
  - Emotional distress [None]
  - Psychotic disorder [None]
  - Quality of life decreased [None]
